FAERS Safety Report 4794797-9 (Version None)
Quarter: 2005Q3

REPORT INFORMATION
  Report Type: 
  Country: None (occurrence: None)
  Receive Date: 20050914
  Receipt Date: 20041005
  Transmission Date: 20060218
  Serious: Yes (Hospitalization)
  Sender: FDA-Public Use
  Company Number: 163-20785-04100087

PATIENT
  Age: 82 Year
  Sex: Female

DRUGS (4)
  1. THALOMID [Suspect]
     Indication: OVARIAN CANCER
     Dosage: 100 MG, QHS, ORAL; 200 MG, QHS, ORAL
     Route: 048
     Dates: start: 20040625, end: 20040701
  2. THALOMID [Suspect]
     Indication: OVARIAN CANCER
     Dosage: 100 MG, QHS, ORAL; 200 MG, QHS, ORAL
     Route: 048
     Dates: start: 20040701, end: 20040901
  3. CIPRO [Concomitant]
  4. FLAGYL [Concomitant]

REACTIONS (3)
  - ABSCESS INTESTINAL [None]
  - DIZZINESS [None]
  - LARGE INTESTINAL OBSTRUCTION [None]
